FAERS Safety Report 17848499 (Version 1)
Quarter: 2020Q2

REPORT INFORMATION
  Report Type: Spontaneous
  Country: US (occurrence: US)
  Receive Date: 20200602
  Receipt Date: 20200602
  Transmission Date: 20200714
  Serious: Yes (Death, Hospitalization)
  Sender: FDA-Public Use
  Company Number: US-SUN PHARMACEUTICAL INDUSTRIES LTD-2020R1-248799

PATIENT
  Age: 65 Year
  Sex: Male

DRUGS (3)
  1. TAMSULOSIN [Suspect]
     Active Substance: TAMSULOSIN
     Indication: SUICIDE ATTEMPT
     Dosage: 0.4 MILLIGRAM, UNK (30 TABLETS)
     Route: 065
  2. GENVOYA [Suspect]
     Active Substance: COBICISTAT\ELVITEGRAVIR\EMTRICITABINE\TENOFOVIR ALAFENAMIDE FUMARATE
     Indication: SUICIDE ATTEMPT
     Dosage: 150-150-200-10 MG (30 TABLETS)
     Route: 065
  3. PREZISTA [Suspect]
     Active Substance: DARUNAVIR ETHANOLATE
     Indication: SUICIDE ATTEMPT
     Dosage: 800 MILLIGRAM (30 TABLETS)
     Route: 065

REACTIONS (7)
  - Overdose [Unknown]
  - Electrocardiogram QT interval [Unknown]
  - Toxicity to various agents [Unknown]
  - Pulseless electrical activity [Fatal]
  - Suicide attempt [Fatal]
  - Hypotension [Unknown]
  - QRS axis abnormal [Unknown]
